FAERS Safety Report 8760773 (Version 2)
Quarter: 2012Q4

REPORT INFORMATION
  Report Type: 
  Country: NZ (occurrence: NZ)
  Receive Date: 20120830
  Receipt Date: 20120830
  Transmission Date: 20130627
  Serious: Yes (Other)
  Sender: FDA-Public Use
  Company Number: PHHY2012NZ067726

PATIENT
  Sex: Male

DRUGS (12)
  1. CLOZARIL [Suspect]
     Indication: SCHIZOPHRENIA
     Dosage: 37.5 mg daily
     Route: 048
     Dates: start: 20120424, end: 20120518
  2. ASPIRIN [Concomitant]
     Dosage: 100 mg daily
     Route: 048
  3. PANTOPRAZOLE [Concomitant]
  4. SIMVASTATIN [Concomitant]
  5. SINEMET [Concomitant]
  6. CLOPIDOGREL [Concomitant]
  7. METOPROLOL [Concomitant]
  8. ISMN [Concomitant]
  9. FLUDROCORTISONE [Concomitant]
  10. CLONAZEPAM [Concomitant]
  11. GTN [Concomitant]
  12. MIRTAZAPINE [Concomitant]

REACTIONS (6)
  - Coronary artery disease [Unknown]
  - Myocardial ischaemia [Unknown]
  - Myocarditis [Unknown]
  - Acute myocardial infarction [Recovered/Resolved]
  - Troponin increased [Recovered/Resolved]
  - Chest pain [Recovered/Resolved]
